FAERS Safety Report 6984355-X (Version None)
Quarter: 2010Q3

REPORT INFORMATION
  Report Type: 
  Country: None (occurrence: None)
  Receive Date: 20100915
  Receipt Date: 20100428
  Transmission Date: 20110219
  Serious: Yes (Hospitalization)
  Sender: FDA-Public Use
  Company Number: US-BAYER-201013292NA

PATIENT
  Age: 26 Year
  Sex: Female
  Weight: 106 kg

DRUGS (2)
  1. YAZ [Suspect]
     Indication: PRODUCT USED FOR UNKNOWN INDICATION
     Route: 048
     Dates: start: 20081201, end: 20090101
  2. LORTAB [Concomitant]
     Indication: PAIN

REACTIONS (1)
  - CHOLECYSTECTOMY [None]
